FAERS Safety Report 4394608-X (Version None)
Quarter: 2004Q3

REPORT INFORMATION
  Report Type: 
  Country: None (occurrence: None)
  Receive Date: 20040707
  Receipt Date: 20040625
  Transmission Date: 20050211
  Serious: Yes (Other)
  Sender: FDA-Public Use
  Company Number: US-JNJFOC-20040608305

PATIENT
  Age: 75 Year
  Sex: Female
  Weight: 83.4619 kg

DRUGS (4)
  1. REMICADE [Suspect]
     Indication: RHEUMATOID ARTHRITIS
     Dosage: 300 MG, INTRAVENOUS
     Route: 042
     Dates: start: 20040401
  2. MXT (METHOTREXATE SODIUM) [Concomitant]
  3. DOLOBID [Concomitant]
  4. ELAVIL (AMITRYIPTYLINE HYDROHCLORIDE) [Concomitant]

REACTIONS (1)
  - BLINDNESS UNILATERAL [None]
